FAERS Safety Report 18439289 (Version 1)
Quarter: 2020Q4

REPORT INFORMATION
  Report Type: Spontaneous
  Country: JP (occurrence: JP)
  Receive Date: 20201029
  Receipt Date: 20201029
  Transmission Date: 20210114
  Serious: Yes (Hospitalization, Other)
  Sender: FDA-Public Use
  Company Number: JP-AMGEN-JPNSP2020174588

PATIENT
  Age: 57 Year
  Sex: Female
  Weight: 38 kg

DRUGS (11)
  1. LENADEX [Concomitant]
     Active Substance: DEXAMETHASONE ACETATE
     Indication: PLASMA CELL MYELOMA
     Dosage: UNK
     Route: 065
  2. PASETOCIN [AMOXICILLIN TRIHYDRATE] [Concomitant]
     Dosage: UNK
     Route: 048
  3. LANSOPRAZOLE. [Concomitant]
     Active Substance: LANSOPRAZOLE
     Dosage: UNK
     Route: 065
  4. ACICLOVIR [Concomitant]
     Active Substance: ACYCLOVIR
     Dosage: UNK
     Route: 065
  5. KYPROLIS [Suspect]
     Active Substance: CARFILZOMIB
     Indication: PLASMA CELL MYELOMA
     Dosage: 25 MG
     Route: 041
     Dates: start: 20200508, end: 20200508
  6. METRONIDAZOLE AMEL [Suspect]
     Active Substance: METRONIDAZOLE
     Indication: INTERSTITIAL LUNG DISEASE
     Dosage: UNK
     Route: 065
     Dates: start: 20200518
  7. MAGNESIUM OXIDE. [Concomitant]
     Active Substance: MAGNESIUM OXIDE
     Dosage: UNK
     Route: 065
  8. KYPROLIS [Suspect]
     Active Substance: CARFILZOMIB
     Dosage: 88 MG
     Route: 041
     Dates: start: 20200515, end: 20200515
  9. LEVOFLOXACIN HEMIHYDRATE [Suspect]
     Active Substance: LEVOFLOXACIN
     Indication: INTERSTITIAL LUNG DISEASE
     Dosage: UNK
     Route: 048
     Dates: start: 20200516
  10. DAIPHEN [Concomitant]
     Active Substance: SULFAMETHOXAZOLE\TRIMETHOPRIM
     Dosage: UNK
     Route: 065
  11. LEVOFLOXACIN HEMIHYDRATE [Suspect]
     Active Substance: LEVOFLOXACIN
     Indication: INTERSTITIAL LUNG DISEASE
     Dosage: UNK
     Route: 042

REACTIONS (7)
  - Pancytopenia [Recovering/Resolving]
  - Interstitial lung disease [Recovered/Resolved]
  - Acute kidney injury [Recovered/Resolved]
  - Rash [Recovering/Resolving]
  - Drug eruption [Unknown]
  - Rash pruritic [Recovering/Resolving]
  - Liver disorder [Unknown]

NARRATIVE: CASE EVENT DATE: 20200516
